FAERS Safety Report 23115392 (Version 2)
Quarter: 2023Q4

REPORT INFORMATION
  Report Type: Report from Study
  Country: TN (occurrence: TN)
  Receive Date: 20231027
  Receipt Date: 20231221
  Transmission Date: 20240109
  Serious: Yes (Hospitalization)
  Sender: FDA-Public Use
  Company Number: TN-ABBVIE-5463579

PATIENT
  Age: 61 Year
  Sex: Female

DRUGS (7)
  1. HUMIRA [Suspect]
     Active Substance: ADALIMUMAB
     Indication: Crohn^s disease
     Dosage: FORM STRENGTH: 40 MILLIGRAM?LOADING DOSE
     Route: 058
     Dates: start: 202308, end: 202309
  2. HUMIRA [Suspect]
     Active Substance: ADALIMUMAB
     Indication: Psoriatic arthropathy
     Dosage: FORM STRENGTH: 40 MILLIGRAM
     Route: 058
     Dates: start: 20231107
  3. HUMIRA [Suspect]
     Active Substance: ADALIMUMAB
     Dosage: FORM STRENGTH: 40 MILLIGRAM?LOADING DOSE
     Route: 058
     Dates: start: 20230808, end: 20230808
  4. METHOTREXATE [Concomitant]
     Active Substance: METHOTREXATE
     Indication: Rheumatic disorder
     Dosage: 4 TABLET?4 DOSAGE FORM
     Dates: start: 2021
  5. IRON [Concomitant]
     Active Substance: IRON
     Indication: Anaemia
     Dosage: 2 DOSAGE FORM
     Dates: start: 2021
  6. IRON [Concomitant]
     Active Substance: IRON
     Indication: Anaemia
     Dosage: 1 TABLET?1 DOSAGE FORM
     Dates: start: 2021
  7. PREDNISONE [Concomitant]
     Active Substance: PREDNISONE
     Indication: Rheumatic disorder
     Dosage: 1 TABLET?1 DOSAGE FORM
     Dates: start: 2021

REACTIONS (4)
  - Gastrointestinal inflammation [Recovered/Resolved]
  - C-reactive protein increased [Recovered/Resolved]
  - Gastrointestinal pain [Unknown]
  - Arthritis [Recovered/Resolved]

NARRATIVE: CASE EVENT DATE: 20230901
